FAERS Safety Report 9526080 (Version 1)
Quarter: 2013Q1

REPORT INFORMATION
  Report Type: Spontaneous
  Country: US (occurrence: None)
  Receive Date: 20130314
  Receipt Date: 20130314
  Transmission Date: 20140127
  Serious: No
  Sender: FDA-Public Use
  Company Number: 1301USA004887

PATIENT
  Age: 28 Year
  Sex: Male

DRUGS (3)
  1. PEGINTRON [Suspect]
     Indication: HEPATITIS C
     Dosage: REDIPEN
     Dates: start: 20121219
  2. RIBAVIRIN [Suspect]
     Indication: HEPATITIS C
     Dates: start: 20121219
  3. VICTRELIS [Suspect]
     Indication: HEPATITIS C
     Dates: start: 20130117

REACTIONS (7)
  - Vomiting [None]
  - Leukopenia [None]
  - Dizziness [None]
  - Respiratory disorder [None]
  - Dyspepsia [None]
  - Fatigue [None]
  - Nausea [None]
